FAERS Safety Report 7460904-2 (Version None)
Quarter: 2011Q2

REPORT INFORMATION
  Report Type: 
  Country: None (occurrence: None)
  Receive Date: 20110505
  Receipt Date: 20110420
  Transmission Date: 20111010
  Serious: Yes (Hospitalization)
  Sender: FDA-Public Use
  Company Number: DE-GENENTECH-310101

PATIENT
  Sex: Female

DRUGS (2)
  1. LUCENTIS [Suspect]
     Indication: AGE-RELATED MACULAR DEGENERATION
     Dosage: UNK
     Route: 031
     Dates: start: 20100503
  2. LUCENTIS [Suspect]
     Dosage: UNK
     Route: 031
     Dates: start: 20100628

REACTIONS (4)
  - HYPERSENSITIVITY [None]
  - UPPER LIMB FRACTURE [None]
  - FALL [None]
  - DYSPHAGIA [None]
